FAERS Safety Report 5473828-7 (Version None)
Quarter: 2007Q4

REPORT INFORMATION
  Report Type: 
  Country: None (occurrence: None)
  Receive Date: 20071001
  Receipt Date: 20070919
  Transmission Date: 20080405
  Serious: Yes (Hospitalization)
  Sender: FDA-Public Use
  Company Number: US-PFIZER INC-2007077925

PATIENT
  Sex: Female
  Weight: 90 kg

DRUGS (8)
  1. SUTENT [Suspect]
     Indication: METASTATIC RENAL CELL CARCINOMA
     Route: 048
  2. LISINOPRIL [Concomitant]
     Route: 048
  3. HYDROCHLOROTHIAZIDE [Concomitant]
     Route: 048
     Dates: start: 20070731
  4. SYNTHROID [Concomitant]
     Route: 048
     Dates: start: 20030130
  5. ZOLOFT [Concomitant]
     Route: 048
     Dates: start: 20030722
  6. MOTRIN [Concomitant]
     Route: 048
     Dates: start: 20040708
  7. LOPERAMIDE HYDROCHLORIDE [Concomitant]
     Route: 048
     Dates: start: 20060826
  8. LOVASTATIN [Concomitant]
     Route: 048
     Dates: start: 20070125

REACTIONS (1)
  - SKIN ULCER [None]
